FAERS Safety Report 21973160 (Version 2)
Quarter: 2023Q1

REPORT INFORMATION
  Report Type: Spontaneous
  Country: PL (occurrence: PL)
  Receive Date: 20230209
  Receipt Date: 20230320
  Transmission Date: 20230418
  Serious: Yes (Death)
  Sender: FDA-Public Use
  Company Number: PL-BAYER-2023P008778

PATIENT
  Sex: Male

DRUGS (4)
  1. EYLEA [Suspect]
     Active Substance: AFLIBERCEPT
     Indication: Muscle infarction
     Dosage: 2 MG, SOLUTION FOR INJECTION (40MG/ML)
     Dates: start: 20220614, end: 202210
  2. EYLEA [Suspect]
     Active Substance: AFLIBERCEPT
     Dosage: 2 MG, SOLUTION FOR INJECTION (40MG/ML)
     Dates: start: 20221107
  3. RANIBIZUMAB [Concomitant]
     Active Substance: RANIBIZUMAB
     Indication: Product used for unknown indication
     Dosage: UNK
     Route: 031
     Dates: start: 20221115
  4. RANIBIZUMAB [Concomitant]
     Active Substance: RANIBIZUMAB
     Dosage: UNK
     Route: 031
     Dates: start: 20230110

REACTIONS (1)
  - Death [Fatal]
